FAERS Safety Report 12228533 (Version 1)
Quarter: 2016Q2

REPORT INFORMATION
  Report Type: Spontaneous
  Country: US (occurrence: US)
  Receive Date: 20160401
  Receipt Date: 20160401
  Transmission Date: 20160815
  Serious: No
  Sender: FDA-Public Use
  Company Number: US-PFIZER INC-2016147120

PATIENT
  Age: 54 Year
  Sex: Female

DRUGS (2)
  1. GABAPENTIN. [Suspect]
     Active Substance: GABAPENTIN
     Indication: NEUROPATHY PERIPHERAL
     Dosage: 700 MG, 1X/DAY (200 MG IN MORNING AND 300 MG IN AFTERNOON 200 MG AT NIGHT)
     Dates: start: 201008, end: 201511
  2. NORTRIPTYLINE [Suspect]
     Active Substance: NORTRIPTYLINE

REACTIONS (4)
  - Hypoaesthesia [Unknown]
  - Product use issue [Unknown]
  - Dizziness [Recovering/Resolving]
  - Paraesthesia [Unknown]
